FAERS Safety Report 7088374-7 (Version None)
Quarter: 2010Q4

REPORT INFORMATION
  Report Type: 
  Country: None (occurrence: None)
  Receive Date: 20101028
  Receipt Date: 20101015
  Transmission Date: 20110411
  Serious: Yes (Other)
  Sender: FDA-Public Use
  Company Number: 2010AP002168

PATIENT
  Age: 64 Year
  Sex: Female

DRUGS (6)
  1. LISINOPRIL [Suspect]
  2. AMLODIPINE [Concomitant]
  3. ACETYLSALICYLIC ACID [Concomitant]
  4. GABAPENTIN [Concomitant]
  5. CALCIUM [Concomitant]
  6. SIMVASTATIN [Concomitant]

REACTIONS (3)
  - INTERSTITIAL GRANULOMATOUS DERMATITIS [None]
  - MYCOSIS FUNGOIDES [None]
  - PSEUDOLYMPHOMA [None]
